FAERS Safety Report 8298491-1 (Version None)
Quarter: 2012Q2

REPORT INFORMATION
  Report Type: 
  Country: None (occurrence: None)
  Receive Date: 20120419
  Receipt Date: 20111212
  Transmission Date: 20120825
  Serious: No
  Sender: FDA-Public Use
  Company Number: US-ABBOTT-11P-163-0882857-00

PATIENT
  Sex: Female
  Weight: 32.688 kg

DRUGS (2)
  1. LUPRON [Suspect]
     Indication: PRECOCIOUS PUBERTY
     Route: 030
     Dates: start: 20111101
  2. LUPRON [Suspect]
     Route: 030
     Dates: start: 20110901, end: 20111001

REACTIONS (3)
  - INJECTION SITE SWELLING [None]
  - INJECTION SITE PAIN [None]
  - PAIN IN EXTREMITY [None]
